FAERS Safety Report 8581790 (Version 2)
Quarter: 2014Q3

REPORT INFORMATION
  Report Type: Spontaneous
  Country: US (occurrence: US)
  Receive Date: 20120528
  Receipt Date: 20140728
  Transmission Date: 20150326
  Serious: Yes (Hospitalization)
  Sender: FDA-Public Use
  Company Number: US-RANBAXY-2012US-56558

PATIENT
  Age: 4 Year
  Sex: Male

DRUGS (1)
  1. PARACETAMOL/ACETAMINOPHEN [Suspect]
     Active Substance: ACETAMINOPHEN
     Indication: PRODUCT USED FOR UNKNOWN INDICATION
     Dosage: UNK
     Route: 042

REACTIONS (3)
  - Medication error [Recovered/Resolved]
  - Metabolic acidosis [Recovered/Resolved]
  - Incorrect route of drug administration [Recovered/Resolved]
